FAERS Safety Report 5938484-X (Version None)
Quarter: 2008Q4

REPORT INFORMATION
  Report Type: 
  Country: None (occurrence: None)
  Receive Date: 20081103
  Receipt Date: 20081024
  Transmission Date: 20090506
  Serious: Yes (Hospitalization)
  Sender: FDA-Public Use
  Company Number: US-AVENTIS-200815272US

PATIENT
  Sex: Male
  Weight: 92 kg

DRUGS (11)
  1. LANTUS [Suspect]
     Route: 058
     Dates: start: 20070101
  2. COUMADIN [Concomitant]
     Dosage: DOSE: UNK
  3. LASIX [Concomitant]
     Dosage: DOSE: UNK
  4. COREG [Concomitant]
     Dosage: DOSE: UNK
  5. DIGOXIN [Concomitant]
     Dosage: DOSE: UNK
  6. GLUCOPHAGE [Concomitant]
  7. AMARYL [Concomitant]
  8. DIOVANE [Concomitant]
     Dosage: DOSE: UNK
  9. ALDACTONE [Concomitant]
     Dosage: DOSE: UNK
  10. PREDNISONE [Concomitant]
     Dosage: DOSE: UNK
  11. PROVASTIN [Concomitant]
     Indication: BLOOD CHOLESTEROL ABNORMAL
     Dosage: DOSE: UNK

REACTIONS (3)
  - BETA HAEMOLYTIC STREPTOCOCCAL INFECTION [None]
  - PYREXIA [None]
  - TREMOR [None]
